FAERS Safety Report 17862928 (Version 1)
Quarter: 2020Q2

REPORT INFORMATION
  Report Type: Spontaneous
  Country: US (occurrence: US)
  Receive Date: 20200604
  Receipt Date: 20200604
  Transmission Date: 20200714
  Serious: No
  Sender: FDA-Public Use
  Company Number: US-FOUNDATIONCONSUMERHC-2020-US-007463

PATIENT
  Age: 27 Year
  Sex: Female
  Weight: 95.26 kg

DRUGS (2)
  1. TAKE ACTION [Suspect]
     Active Substance: LEVONORGESTREL
     Indication: POST COITAL CONTRACEPTION
     Dosage: 1.5 MG X 1 DOSE
     Route: 048
     Dates: start: 20200408, end: 20200408
  2. FLO-VITAMINS [Concomitant]

REACTIONS (4)
  - Vomiting [Recovered/Resolved]
  - Dysmenorrhoea [Recovered/Resolved]
  - Cold sweat [Recovered/Resolved]
  - Migraine [Recovered/Resolved]

NARRATIVE: CASE EVENT DATE: 20200409
